FAERS Safety Report 7454430-4 (Version None)
Quarter: 2011Q2

REPORT INFORMATION
  Report Type: 
  Country: None (occurrence: None)
  Receive Date: 20110425
  Receipt Date: 20110420
  Transmission Date: 20111010
  Serious: Yes (Other)
  Sender: FDA-Public Use
  Company Number: ACO_23486_2011

PATIENT
  Sex: Female
  Weight: 113.4 kg

DRUGS (1)
  1. AMPYRA [Suspect]
     Indication: GAIT DISTURBANCE
     Dosage: 10 MG, BID
     Dates: start: 20110201

REACTIONS (2)
  - DECREASED APPETITE [None]
  - ABNORMAL LOSS OF WEIGHT [None]
